FAERS Safety Report 8432185-4 (Version None)
Quarter: 2012Q2

REPORT INFORMATION
  Report Type: 
  Country: None (occurrence: None)
  Receive Date: 20120613
  Receipt Date: 20120605
  Transmission Date: 20120825
  Serious: Yes (Hospitalization)
  Sender: FDA-Public Use
  Company Number: US-BAYER-2012-008633

PATIENT
  Age: 47 Year
  Sex: Female
  Weight: 77.098 kg

DRUGS (22)
  1. NEUPOGEN [Concomitant]
  2. GEODON [Concomitant]
     Dosage: 40 UNK, UNK
  3. PROTONIX [Concomitant]
     Dosage: 40 MG, UNK
     Route: 042
     Dates: start: 20100119, end: 20100120
  4. YASMIN [Suspect]
     Indication: PREMENSTRUAL SYNDROME
  5. YAZ [Suspect]
     Indication: CONTRACEPTION
     Dosage: UNK
     Dates: start: 20040101, end: 20100101
  6. SYMBICORT [Concomitant]
     Dosage: UNK UNK, BID
     Route: 045
  7. LOVENOX [Concomitant]
     Dosage: 40 MG, UNK
     Route: 058
     Dates: start: 20100119
  8. YAZ [Suspect]
     Indication: ACNE
  9. CYMBALTA [Concomitant]
     Dosage: 90 MG, QD
  10. NUVIGIL [Concomitant]
     Dosage: UNK UNK, QD
  11. NASONEX [Concomitant]
     Dosage: UNK UNK, PRN
  12. TRAZODONE HCL [Concomitant]
     Dosage: 1000 MG, HS
  13. PERCOCET [Concomitant]
     Indication: RENAL COLIC
     Dosage: UNK UNK, PRN
  14. LEVOTHYROXINE SODIUM [Concomitant]
     Indication: THYROID DISORDER
     Dosage: UNK
     Dates: start: 20030101
  15. YAZ [Suspect]
     Indication: PREMENSTRUAL SYNDROME
  16. UNKNOWN [Concomitant]
     Indication: GASTROOESOPHAGEAL REFLUX DISEASE
  17. COUMADIN [Concomitant]
     Dosage: 2.5 MG, UNK
  18. YASMIN [Suspect]
     Indication: CONTRACEPTION
     Dosage: UNK
     Dates: start: 20040101, end: 20100101
  19. YASMIN [Suspect]
     Indication: ACNE
  20. SYNTHROID [Concomitant]
     Dosage: 75 MCG/24HR, UNK
  21. CIPROFLOXACIN [Concomitant]
     Dosage: 400 MG, BID
  22. PREDNISONE TAB [Concomitant]

REACTIONS (1)
  - CEREBROVASCULAR ACCIDENT [None]
